FAERS Safety Report 9270658 (Version 1)
Quarter: 2013Q2

REPORT INFORMATION
  Report Type: Spontaneous
  Country: GB (occurrence: GB)
  Receive Date: 20130505
  Receipt Date: 20130505
  Transmission Date: 20140414
  Serious: Yes (Hospitalization, Other)
  Sender: FDA-Public Use
  Company Number: PHHY2013GB042622

PATIENT
  Age: 80 Year
  Sex: Male

DRUGS (2)
  1. NYSTATIN [Suspect]
     Dosage: 1 ML, QID
     Route: 048
     Dates: start: 20130404, end: 20130410
  2. WARFARIN [Interacting]

REACTIONS (2)
  - International normalised ratio increased [Unknown]
  - Drug interaction [Recovered/Resolved]
